FAERS Safety Report 12855427 (Version 4)
Quarter: 2018Q3

REPORT INFORMATION
  Report Type: Spontaneous
  Country: FR (occurrence: FR)
  Receive Date: 20161017
  Receipt Date: 20180927
  Transmission Date: 20181010
  Serious: Yes (Other)
  Sender: FDA-Public Use
  Company Number: FR-ABBVIE-16P-056-1755371-00

PATIENT
  Age: 3 Year
  Sex: Male

DRUGS (1)
  1. DEPAKINE CRONO [Suspect]
     Active Substance: VALPROIC ACID
     Indication: MATERNAL EXPOSURE TIMING UNSPECIFIED
     Route: 064

REACTIONS (26)
  - Visual impairment [Unknown]
  - Inappropriate affect [Unknown]
  - Autism spectrum disorder [Unknown]
  - Middle insomnia [Unknown]
  - Stress urinary incontinence [Unknown]
  - Abnormal behaviour [Unknown]
  - Amblyopia [Unknown]
  - Astigmatism [Unknown]
  - Tooth malformation [Unknown]
  - Cardiac murmur [Unknown]
  - Frustration tolerance decreased [Unknown]
  - Hypotonia [Unknown]
  - Strabismus [Unknown]
  - Psychomotor retardation [Unknown]
  - Nightmare [Unknown]
  - Myopia [Unknown]
  - Ear, nose and throat examination abnormal [Unknown]
  - Bradyphrenia [Unknown]
  - Clumsiness [Unknown]
  - Echolalia [Unknown]
  - Balance disorder [Unknown]
  - Foetal exposure during pregnancy [Unknown]
  - Disturbance in attention [Unknown]
  - Speech disorder [Unknown]
  - Peripheral sensorimotor neuropathy [Unknown]
  - Cerebellar syndrome [Unknown]

NARRATIVE: CASE EVENT DATE: 2010
